FAERS Safety Report 12550567 (Version 3)
Quarter: 2016Q3

REPORT INFORMATION
  Report Type: Spontaneous
  Country: US (occurrence: US)
  Receive Date: 20160712
  Receipt Date: 20160823
  Transmission Date: 20161109
  Serious: No
  Sender: FDA-Public Use
  Company Number: US-PFIZER INC-2016326939

PATIENT
  Age: 78 Year
  Sex: Female
  Weight: 99.79 kg

DRUGS (8)
  1. NORCO [Concomitant]
     Active Substance: ACETAMINOPHEN\HYDROCODONE BITARTRATE
     Dosage: UNK
     Dates: start: 20160302, end: 20160402
  2. SYNTHROID [Concomitant]
     Active Substance: LEVOTHYROXINE SODIUM
     Indication: HYPOTHYROIDISM
     Dosage: 75 UG, 1X/DAY
     Route: 048
  3. GABAPENTIN. [Suspect]
     Active Substance: GABAPENTIN
     Indication: NEURALGIA
     Dosage: 2 DF, 2X/DAY (2 TABLETS IN THE MORNING AND 2 TABLETS IN THE EVENING BY MOUTH)
     Route: 048
     Dates: start: 20160302, end: 20160402
  4. BENICAR [Concomitant]
     Active Substance: OLMESARTAN MEDOXOMIL
     Indication: BLOOD PRESSURE ABNORMAL
     Dosage: 40 MG, 1X/DAY
     Route: 048
  5. GABAPENTIN. [Suspect]
     Active Substance: GABAPENTIN
     Dosage: UNK
     Dates: start: 20160302, end: 20160402
  6. NORCO [Concomitant]
     Active Substance: ACETAMINOPHEN\HYDROCODONE BITARTRATE
     Indication: PAIN
     Dosage: [HYDROCODONE 5MG]/[PARACETAMOL 325MG], AS NEEDED (5-325MG TABLET 1-2 BY MOUTH AS NEEDED)
     Dates: start: 20160302, end: 20160402
  7. LYRICA [Suspect]
     Active Substance: PREGABALIN
     Indication: NEURALGIA
     Dosage: 50 MG 2, TWICE A DAY
     Dates: start: 20160402, end: 20160710
  8. NIFEDIPINE. [Concomitant]
     Active Substance: NIFEDIPINE
     Indication: BLOOD PRESSURE ABNORMAL
     Dosage: 60 MG, 1X/DAY, IN THE MORNING
     Route: 048

REACTIONS (8)
  - Pain in extremity [Recovered/Resolved]
  - Product use issue [Recovered/Resolved]
  - Peripheral swelling [Not Recovered/Not Resolved]
  - Pain [Recovered/Resolved]
  - Neuralgia [Recovered/Resolved]
  - Weight increased [Not Recovered/Not Resolved]
  - Gait disturbance [Recovered/Resolved]
  - Musculoskeletal pain [Recovered/Resolved]

NARRATIVE: CASE EVENT DATE: 20160302
